FAERS Safety Report 8427689-4 (Version None)
Quarter: 2012Q2

REPORT INFORMATION
  Report Type: 
  Country: None (occurrence: None)
  Receive Date: 20120611
  Receipt Date: 20120601
  Transmission Date: 20120825
  Serious: Yes (Disabling, Other)
  Sender: FDA-Public Use
  Company Number: DE-ACTELION-A-US2012-66884

PATIENT

DRUGS (1)
  1. VENTAVIS [Suspect]
     Indication: PULMONARY ARTERIAL HYPERTENSION
     Dosage: 2.5 UG, Q4H
     Route: 055
     Dates: start: 20120508, end: 20120601

REACTIONS (6)
  - CHEST PAIN [None]
  - DYSPNOEA [None]
  - DIZZINESS [None]
  - PARAESTHESIA [None]
  - HYPOTENSION [None]
  - CARDIOVASCULAR DISORDER [None]
